FAERS Safety Report 17705425 (Version 2)
Quarter: 2020Q2

REPORT INFORMATION
  Report Type: Spontaneous
  Country: US (occurrence: US)
  Receive Date: 20200424
  Receipt Date: 20200427
  Transmission Date: 20200714
  Serious: Yes (Other)
  Sender: FDA-Public Use
  Company Number: US-PFIZER INC-2020163981

PATIENT
  Age: 82 Year
  Sex: Male

DRUGS (1)
  1. TAFAMIDIS MEGLUMINE [Suspect]
     Active Substance: TAFAMIDIS MEGLUMINE
     Indication: AMYLOIDOSIS
     Dosage: 20 MG

REACTIONS (14)
  - Hypotension [Unknown]
  - Lumbar spinal stenosis [Unknown]
  - Occult blood positive [Unknown]
  - Product use in unapproved indication [Unknown]
  - Type V hyperlipidaemia [Unknown]
  - Nystagmus [Unknown]
  - Troponin increased [Unknown]
  - Hypertension [Unknown]
  - Gastrointestinal disorder [Unknown]
  - Coronary artery disease [Unknown]
  - Cerebrovascular accident [Unknown]
  - Atrial fibrillation [Unknown]
  - Obesity [Unknown]
  - Off label use [Unknown]
